FAERS Safety Report 15394823 (Version 1)
Quarter: 2018Q4

REPORT INFORMATION
  Report Type: Spontaneous
  Country: PL (occurrence: PL)
  Receive Date: 20180918
  Receipt Date: 20180918
  Transmission Date: 20190204
  Serious: Yes (Other)
  Sender: FDA-Public Use
  Company Number: PL-BAXTER-2018BAX023588

PATIENT
  Age: 62 Year
  Sex: Female

DRUGS (7)
  1. ENDOXAN [Suspect]
     Active Substance: CYCLOPHOSPHAMIDE
     Indication: B-CELL LYMPHOMA
     Route: 065
     Dates: start: 20180528
  2. VINCRISTINE [Suspect]
     Active Substance: VINCRISTINE
     Indication: B-CELL LYMPHOMA
     Route: 065
  3. DOXORUBICIN [Suspect]
     Active Substance: DOXORUBICIN
     Indication: B-CELL LYMPHOMA
     Route: 065
     Dates: start: 20180528
  4. METHOTREXATE. [Suspect]
     Active Substance: METHOTREXATE
     Indication: B-CELL LYMPHOMA
     Route: 065
  5. RITUXIMAB. [Suspect]
     Active Substance: RITUXIMAB
     Indication: B-CELL LYMPHOMA
     Route: 065
     Dates: start: 20180528
  6. PREDNISONE. [Suspect]
     Active Substance: PREDNISONE
     Indication: B-CELL LYMPHOMA
     Route: 065
  7. ARACHIDONIC ACID W/ASCORBIC ACID/COLECALCIFER [Suspect]
     Active Substance: DIETARY SUPPLEMENT
     Indication: B-CELL LYMPHOMA
     Route: 065

REACTIONS (6)
  - Dysphagia [Unknown]
  - Nervous system disorder [Unknown]
  - Tumour lysis syndrome [Recovered/Resolved]
  - Pleocytosis [Recovered/Resolved]
  - IIIrd nerve paralysis [Unknown]
  - B-lymphocyte count abnormal [Unknown]

NARRATIVE: CASE EVENT DATE: 20180720
